FAERS Safety Report 4295019-8 (Version None)
Quarter: 2004Q1

REPORT INFORMATION
  Report Type: 
  Country: None (occurrence: None)
  Receive Date: 20040212
  Receipt Date: 20040212
  Transmission Date: 20041129
  Serious: No
  Sender: FDA-Public Use
  Company Number: None

PATIENT
  Age: 84 Year
  Sex: Female
  Weight: 50 kg

DRUGS (7)
  1. INFED [Suspect]
     Indication: ANAEMIA
     Dosage: 25 MG IVPB X ONE
     Route: 040
     Dates: start: 20040201
  2. INFED [Suspect]
     Indication: ANAEMIA
     Dosage: 25 MG IVPB X ONE
     Route: 040
     Dates: start: 20040201
  3. LEVAQUIN [Concomitant]
  4. FORTAZ [Concomitant]
  5. CARDIZEM (DILTIAZEM SR) [Concomitant]
  6. AMIODARONE [Concomitant]
  7. LANOXIN [Concomitant]

REACTIONS (6)
  - BLOOD PRESSURE SYSTOLIC INCREASED [None]
  - CHILLS [None]
  - DIZZINESS [None]
  - DYSPNOEA [None]
  - FLUSHING [None]
  - RESPIRATORY DISTRESS [None]
